FAERS Safety Report 7956286 (Version 3)
Quarter: 2013Q1

REPORT INFORMATION
  Report Type: Report from Study
  Country: GB (occurrence: GB)
  Receive Date: 20110523
  Receipt Date: 20130227
  Transmission Date: 20140127
  Serious: Yes (Life-Threatening)
  Sender: FDA-Public Use
  Company Number: GB-BRISTOL-MYERS SQUIBB COMPANY-15739345

PATIENT
  Age: 66 Year
  Sex: Male

DRUGS (10)
  1. ETOPOSIDE [Suspect]
     Dosage: NO OF COURSES:2
     Dates: start: 20110404, end: 20110412
  2. DAUNORUBICIN [Suspect]
     Dosage: NO OF COURSES:2
     Dates: start: 20110404, end: 20110412
  3. ARA-C [Suspect]
     Dosage: NO OF COURSES:2
     Dates: start: 20110404, end: 20110412
  4. MYLOTARG [Suspect]
     Dosage: NO OF COURSES:2
     Dates: start: 20110404, end: 20110412
  5. AMBISOME [Suspect]
     Dates: start: 20110426, end: 20110503
  6. GENTAMICIN [Concomitant]
     Dates: start: 20110426, end: 20110502
  7. ONDANSETRON [Concomitant]
     Dates: start: 20110428
  8. LEVOTHYROXINE [Concomitant]
     Dosage: 150MCG
     Dates: start: 20110426, end: 20110502
  9. FORCEVAL [Concomitant]
     Dosage: 1DF=1 CAP
     Dates: start: 20110427, end: 20110502
  10. VITAMIN D3 [Concomitant]
     Dates: start: 20110427, end: 20110502

REACTIONS (3)
  - Hypokalaemia [Recovered/Resolved]
  - Petechiae [Unknown]
  - Neutropenia [Unknown]
